FAERS Safety Report 4907152-5 (Version None)
Quarter: 2006Q1

REPORT INFORMATION
  Report Type: 
  Country: None (occurrence: None)
  Receive Date: 20060206
  Receipt Date: 20060116
  Transmission Date: 20060701
  Serious: Yes (Hospitalization)
  Sender: FDA-Public Use
  Company Number: FRPFM-E-20060008 - V001

PATIENT
  Age: 58 Year
  Sex: Female

DRUGS (5)
  1. NAVELBINE (VINORELBINE)SOLUTION FOR INJECTION [Suspect]
     Indication: BREAST CANCER RECURRENT
     Dates: end: 20040101
  2. NAVELBINE (VINORELBINE)SOLUTION FOR INJECTION [Suspect]
     Indication: BREAST CANCER RECURRENT
     Dates: start: 20040301, end: 20040901
  3. FLUOROURACIL ^TEVA^ - FLOUROURACIL [Suspect]
     Indication: BREAST CANCER RECURRENT
     Route: 042
  4. EPIRUBICIN [Suspect]
     Indication: BREAST CANCER RECURRENT
     Route: 042
  5. TAXOTERE [Suspect]
     Indication: BREAST CANCER RECURRENT
     Route: 042

REACTIONS (1)
  - CARDIAC FAILURE CHRONIC [None]
